FAERS Safety Report 17723131 (Version 1)
Quarter: 2020Q2

REPORT INFORMATION
  Report Type: Spontaneous
  Country: JP (occurrence: JP)
  Receive Date: 20200429
  Receipt Date: 20200429
  Transmission Date: 20200714
  Serious: Yes (Death, Life-Threatening, Hospitalization, Other)
  Sender: FDA-Public Use
  Company Number: JP-ACCORD-179951

PATIENT
  Age: 48 Year
  Sex: Male

DRUGS (5)
  1. GEMCITABINE/GEMCITABINE HYDROCHLORIDE [Suspect]
     Active Substance: GEMCITABINE\GEMCITABINE HYDROCHLORIDE
     Indication: GALLBLADDER CANCER STAGE III
     Dosage: GEMCITABINE AND S-1 COMBINATION CHEMOTHERAPY, REGIMEN WAS REPEATED AT A 21-DAY, ON DAYS 1 AND 8
  2. GIMERACIL/OTERACIL/TEGAFUR [Concomitant]
     Active Substance: GIMERACIL\OTERACIL\TEGAFUR
     Indication: GALLBLADDER CANCER STAGE III
     Dosage: GEMCITABINE AND S-1 COMBINATION CHEMOTHERAPY
  3. GIMERACIL/OTERACIL/TEGAFUR [Concomitant]
     Active Substance: GIMERACIL\OTERACIL\TEGAFUR
     Indication: GALLBLADDER CANCER STAGE III
     Dosage: GEMCITABINE AND S-1 COMBINATION CHEMOTHERAPY
  4. CISPLATIN. [Concomitant]
     Active Substance: CISPLATIN
     Indication: GALLBLADDER CANCER STAGE III
     Dosage: REGIMEN WAS REPEATED AT A 21-DAY, ON DAYS 1 AND 8
  5. CISPLATIN. [Concomitant]
     Active Substance: CISPLATIN
     Indication: GALLBLADDER CANCER STAGE III
     Dosage: REGIMEN WAS REPEATED AT A 21-DAY, ON DAYS 1 AND 8

REACTIONS (3)
  - Disseminated intravascular coagulation [Fatal]
  - Eosinophilia [Fatal]
  - Granulocyte-colony stimulating factor level increased [Unknown]
